FAERS Safety Report 7980392 (Version 4)
Quarter: 2016Q2

REPORT INFORMATION
  Report Type: Spontaneous
  Country: FR (occurrence: FR)
  Receive Date: 20110608
  Receipt Date: 20160407
  Transmission Date: 20160815
  Serious: Yes (Other)
  Sender: FDA-Public Use
  Company Number: PHHY2011FR47145

PATIENT
  Age: 71 Year
  Sex: Female

DRUGS (4)
  1. TAMOXIFEN SANDOZ [Suspect]
     Active Substance: TAMOXIFEN
     Indication: BREAST CANCER
     Route: 065
     Dates: start: 20110107, end: 20111220
  2. AVASTIN [Suspect]
     Active Substance: BEVACIZUMAB
     Indication: BREAST CANCER
     Dosage: 25 MG/ML, UNK
     Route: 042
     Dates: start: 201007, end: 20110419
  3. TAXOL [Suspect]
     Active Substance: PACLITAXEL
     Indication: BREAST CANCER
     Route: 041
     Dates: start: 201007, end: 20101222
  4. ZOMETA [Suspect]
     Active Substance: ZOLEDRONIC ACID
     Indication: BONE DISORDER
     Route: 041
     Dates: start: 20100816, end: 20110415

REACTIONS (2)
  - Noninfective gingivitis [Recovered/Resolved]
  - Periodontal destruction [Recovered/Resolved]

NARRATIVE: CASE EVENT DATE: 201104
